FAERS Safety Report 25004592 (Version 1)
Quarter: 2025Q1

REPORT INFORMATION
  Report Type: Spontaneous
  Country: US (occurrence: None)
  Receive Date: 20250222
  Receipt Date: 20250222
  Transmission Date: 20250409
  Serious: No
  Sender: FDA-CTU
  Company Number: None

PATIENT
  Age: 38 Year
  Sex: Female

DRUGS (1)
  1. NIFEDIPINE [Suspect]
     Active Substance: NIFEDIPINE
     Dates: start: 20241231, end: 20250212

REACTIONS (2)
  - Fatigue [None]
  - Dyspnoea exertional [None]

NARRATIVE: CASE EVENT DATE: 20250212
